FAERS Safety Report 5088548-0 (Version None)
Quarter: 2006Q3

REPORT INFORMATION
  Report Type: 
  Country: None (occurrence: None)
  Receive Date: 20060728
  Receipt Date: 20060626
  Transmission Date: 20061208
  Serious: No
  Sender: FDA-Public Use
  Company Number: CLOF-10264

PATIENT
  Age: 70 Year
  Sex: Female

DRUGS (2)
  1. CLOFARABINE [Suspect]
     Indication: ACUTE MYELOID LEUKAEMIA
     Dosage: 51 MG QD X 3 IV
     Route: 042
     Dates: start: 20051014, end: 20051016
  2. CYTARABINE [Suspect]
     Indication: ACUTE MYELOID LEUKAEMIA
     Dosage: 34 MG QD SC
     Route: 058
     Dates: start: 20051014, end: 20051020

REACTIONS (1)
  - BONE MARROW FAILURE [None]
